FAERS Safety Report 22211797 (Version 2)
Quarter: 2023Q2

REPORT INFORMATION
  Report Type: Report from Study
  Country: FR (occurrence: FR)
  Receive Date: 20230414
  Receipt Date: 20230424
  Transmission Date: 20230722
  Serious: Yes (Other)
  Sender: FDA-Public Use
  Company Number: FR-AMGEN-FRACT2023062893

PATIENT
  Age: 67 Year
  Sex: Male
  Weight: 95 kg

DRUGS (6)
  1. PANITUMUMAB [Suspect]
     Active Substance: PANITUMUMAB
     Indication: Colorectal cancer
     Dosage: 570 MILLIGRAM (1ST CYCLE)
     Route: 042
     Dates: start: 20190625
  2. OXALIPLATIN [Suspect]
     Active Substance: OXALIPLATIN
     Indication: Colorectal cancer
     Dosage: 176 MILLIGRAM (1ST CYCLE)
     Route: 042
     Dates: start: 20190625
  3. IRINOTECAN [Suspect]
     Active Substance: IRINOTECAN
     Indication: Colorectal cancer
     Dosage: UNK
     Route: 042
     Dates: start: 20190625
  4. FLUOROURACIL [Suspect]
     Active Substance: FLUOROURACIL
     Indication: Colorectal cancer
     Dosage: 830 MILLIGRAM (BOLUS)
     Route: 042
     Dates: start: 20190625
  5. FLUOROURACIL [Suspect]
     Active Substance: FLUOROURACIL
     Dosage: 4965 MILLIGRAM (CONTINUOUS)
     Route: 042
     Dates: start: 20190625
  6. LEUCOVORIN [Suspect]
     Active Substance: LEUCOVORIN
     Indication: Colorectal cancer
     Dosage: 400 MILLIGRAM/SQ. METER
     Route: 042
     Dates: start: 20190625

REACTIONS (1)
  - Accidental overdose [Recovered/Resolved]

NARRATIVE: CASE EVENT DATE: 20190625
